FAERS Safety Report 15308560 (Version 1)
Quarter: 2018Q3

REPORT INFORMATION
  Report Type: Report from Study
  Country: CO (occurrence: CO)
  Receive Date: 20180822
  Receipt Date: 20180822
  Transmission Date: 20181010
  Serious: Yes (Hospitalization)
  Sender: FDA-Public Use
  Company Number: PHHY2018CO065994

PATIENT
  Sex: Female
  Weight: 70 kg

DRUGS (1)
  1. ENTRESTO [Suspect]
     Active Substance: SACUBITRIL\VALSARTAN
     Indication: CARDIAC FAILURE
     Dosage: 50 MG (24 MG SACUBITRIL, 26 MG VALSARTAN), Q12H
     Route: 048
     Dates: start: 20180530, end: 20180612

REACTIONS (3)
  - Arrhythmia [Unknown]
  - Fluid retention [Unknown]
  - Lung disorder [Unknown]
